FAERS Safety Report 7049121-8 (Version None)
Quarter: 2010Q4

REPORT INFORMATION
  Report Type: 
  Country: None (occurrence: None)
  Receive Date: 20101018
  Receipt Date: 20101008
  Transmission Date: 20110411
  Serious: Yes (Hospitalization)
  Sender: FDA-Public Use
  Company Number: JP-NOVOPROD-316222

PATIENT
  Age: 45 Year
  Sex: Male
  Weight: 66 kg

DRUGS (3)
  1. VICTOZA [Suspect]
     Indication: TYPE 2 DIABETES MELLITUS
     Dosage: 0.6 MG, QD
     Route: 058
     Dates: start: 20100705
  2. AMARYL [Concomitant]
     Indication: TYPE 2 DIABETES MELLITUS
     Dosage: 1 MG, QD
     Route: 048
     Dates: start: 20090810
  3. KINEDAK [Concomitant]
     Indication: NEUROSIS
     Dosage: /PO
     Route: 048

REACTIONS (1)
  - RETINOPATHY HAEMORRHAGIC [None]
